FAERS Safety Report 10042491 (Version 1)
Quarter: 2014Q1

REPORT INFORMATION
  Report Type: Spontaneous
  Country: AU (occurrence: AU)
  Receive Date: 20140327
  Receipt Date: 20140327
  Transmission Date: 20141002
  Serious: Yes (Other)
  Sender: FDA-Public Use
  Company Number: PHHY2014AU033688

PATIENT
  Sex: Female

DRUGS (1)
  1. TRAMADOL [Suspect]

REACTIONS (3)
  - Arrhythmia [Unknown]
  - Chest pain [Unknown]
  - Nausea [Unknown]
